FAERS Safety Report 13046575 (Version 1)
Quarter: 2016Q4

REPORT INFORMATION
  Report Type: Spontaneous
  Country: US (occurrence: US)
  Receive Date: 20161220
  Receipt Date: 20161220
  Transmission Date: 20170207
  Serious: No
  Sender: FDA-Public Use
  Company Number: GXBR2016US001245

PATIENT
  Age: 60 Year
  Sex: Male
  Weight: 66.67 kg

DRUGS (1)
  1. VORICONAZOLE. [Suspect]
     Active Substance: VORICONAZOLE
     Indication: FUNGAL INFECTION
     Dosage: 200 MG, BID
     Route: 048
     Dates: start: 20160315

REACTIONS (5)
  - Skin exfoliation [Recovering/Resolving]
  - Lip blister [Recovering/Resolving]
  - Visual impairment [Recovered/Resolved]
  - Flushing [Recovering/Resolving]
  - Vision blurred [Recovered/Resolved]

NARRATIVE: CASE EVENT DATE: 20160404
